FAERS Safety Report 12201038 (Version 1)
Quarter: 2016Q1

REPORT INFORMATION
  Report Type: Report from Study
  Country: BR (occurrence: BR)
  Receive Date: 20160322
  Receipt Date: 20160322
  Transmission Date: 20160526
  Serious: Yes (Hospitalization, Other)
  Sender: FDA-Public Use
  Company Number: BR-ABBVIE-15K-020-1521703-00

PATIENT
  Age: 42 Year
  Sex: Female
  Weight: 73 kg

DRUGS (1)
  1. HUMIRA [Suspect]
     Active Substance: ADALIMUMAB
     Indication: PSORIATIC ARTHROPATHY
     Route: 058
     Dates: start: 20130815, end: 201411

REACTIONS (16)
  - Tuberculosis [Recovered/Resolved]
  - Hypersensitivity [Not Recovered/Not Resolved]
  - Decreased appetite [Unknown]
  - Malnutrition [Unknown]
  - Pneumonia [Unknown]
  - Erythema [Unknown]
  - Immunodeficiency [Unknown]
  - Systemic lupus erythematosus [Unknown]
  - Burning sensation [Unknown]
  - Herpes zoster [Not Recovered/Not Resolved]
  - Drug intolerance [Unknown]
  - Gastric disorder [Unknown]
  - Insomnia [Unknown]
  - Paraesthesia [Unknown]
  - Asthenia [Unknown]
  - Wound [Not Recovered/Not Resolved]

NARRATIVE: CASE EVENT DATE: 2014
